FAERS Safety Report 4511196-5 (Version None)
Quarter: 2004Q4

REPORT INFORMATION
  Report Type: 
  Country: None (occurrence: None)
  Receive Date: 20041122
  Receipt Date: 20041122
  Transmission Date: 20050328
  Serious: Yes (Hospitalization)
  Sender: FDA-Public Use
  Company Number: None

PATIENT
  Age: 64 Year
  Sex: Male

DRUGS (9)
  1. SULFAMETHOXAZOLE + TRIMETHOPRIM [Suspect]
     Indication: WOUND
     Dosage: ORAL
     Route: 048
     Dates: start: 20040924, end: 20041004
  2. VASOTEC [Concomitant]
  3. TOPROL-XL [Concomitant]
  4. HALCION [Concomitant]
  5. HYDROXYZINE [Concomitant]
  6. PLAVIX [Concomitant]
  7. PRAVACHOL [Concomitant]
  8. MAXZIDE [Concomitant]
  9. FOSAMAX [Concomitant]

REACTIONS (3)
  - HEPATOTOXICITY [None]
  - JAUNDICE [None]
  - LIVER FUNCTION TEST ABNORMAL [None]
